FAERS Safety Report 7562216-5 (Version None)
Quarter: 2011Q2

REPORT INFORMATION
  Report Type: 
  Country: None (occurrence: None)
  Receive Date: 20110620
  Receipt Date: 20110620
  Transmission Date: 20111010
  Serious: No
  Sender: FDA-Public Use
  Company Number: None

PATIENT
  Sex: Male
  Weight: 24.4942 kg

DRUGS (1)
  1. LAMICTAL ODT [Suspect]
     Indication: BIPOLAR DISORDER
     Dosage: 100MG 1X DAY PO
     Route: 048
     Dates: start: 20110529, end: 20110530

REACTIONS (4)
  - LIP SWELLING [None]
  - DRUG HYPERSENSITIVITY [None]
  - RASH GENERALISED [None]
  - EYE SWELLING [None]
